FAERS Safety Report 10073070 (Version 1)
Quarter: 2014Q2

REPORT INFORMATION
  Report Type: Spontaneous
  Country: IL (occurrence: IL)
  Receive Date: 20140411
  Receipt Date: 20140411
  Transmission Date: 20141212
  Serious: Yes (Other)
  Sender: FDA-Public Use
  Company Number: IL-ACTAVIS-2014-06637

PATIENT
  Age: 18 Month
  Sex: Male

DRUGS (1)
  1. SALBUTAMOL (UNKNOWN) [Suspect]
     Indication: ACCIDENTAL EXPOSURE TO PRODUCT BY CHILD
     Dosage: 24 MG, TOTAL
     Route: 048

REACTIONS (9)
  - Sinus tachycardia [Recovered/Resolved]
  - Agitation [Recovered/Resolved]
  - Hypokalaemia [Recovered/Resolved]
  - Hyperglycaemia [Recovered/Resolved]
  - Leukocytosis [Recovered/Resolved]
  - Neutrophilia [Recovered/Resolved]
  - Electrocardiogram T wave amplitude decreased [Recovered/Resolved]
  - Accidental exposure to product by child [Recovered/Resolved]
  - Accidental overdose [Recovered/Resolved]
